FAERS Safety Report 10019086 (Version 1)
Quarter: 2014Q1

REPORT INFORMATION
  Report Type: Spontaneous
  Country: US (occurrence: None)
  Receive Date: 20140314
  Receipt Date: 20140314
  Transmission Date: 20141002
  Serious: Yes (Hospitalization)
  Sender: FDA-Public Use
  Company Number: None

PATIENT
  Age: 42 Year
  Sex: Female
  Weight: 74.1 kg

DRUGS (19)
  1. VARENICLINE [Suspect]
     Dosage: 0.5 MG QD DAY 1-3 THEN BID DAYS 4-7?SEE ^DOSE OR AMOUNT^?ORAL
     Route: 048
     Dates: start: 20140211, end: 20140218
  2. VARENICLINE [Suspect]
     Dosage: 1.0MG?BID DAYS 8-94?ORAL
     Route: 048
     Dates: start: 20140219, end: 20140222
  3. OMEPRAZOLE??? [Concomitant]
  4. ACETAZOLAMIDE?? [Concomitant]
  5. DEXAMETHASONE?? [Concomitant]
  6. SCOPOLAMINO  ?? [Concomitant]
  7. DICLOFENAC SODIUM  ?? [Concomitant]
  8. HYDROMORPHONE [Concomitant]
  9. CHOLECALOIFEROL [Concomitant]
  10. PYRIDOXINE HCL [Concomitant]
  11. ABSCORBIC ACID [Concomitant]
  12. NORCO [Concomitant]
  13. VENLAFAXINE [Concomitant]
  14. ONDANSETRON [Concomitant]
  15. LORAZEPAM [Concomitant]
  16. ALBUTEROL [Concomitant]
  17. SERTRALINE [Concomitant]
  18. LIDOCAINE-PRILOCAINE CREAM [Concomitant]
  19. CALCIUM CARB CHOLECALCIFEROL [Concomitant]

REACTIONS (5)
  - Confusional state [None]
  - Metastases to central nervous system [None]
  - Memory impairment [None]
  - Electrolyte imbalance [None]
  - Brain oedema [None]
